FAERS Safety Report 6818488-5 (Version None)
Quarter: 2010Q3

REPORT INFORMATION
  Report Type: 
  Country: None (occurrence: None)
  Receive Date: 20100706
  Receipt Date: 20080612
  Transmission Date: 20110219
  Serious: No
  Sender: FDA-Public Use
  Company Number: US-PFIZER INC-2008029804

PATIENT
  Sex: Female
  Weight: 74.39 kg

DRUGS (3)
  1. ZITHROMAX [Suspect]
     Indication: SINUSITIS
     Dates: start: 20080331, end: 20080401
  2. CHANTIX [Suspect]
     Indication: SMOKING CESSATION THERAPY
     Dates: start: 20080329
  3. PRILOSEC [Concomitant]

REACTIONS (14)
  - ABNORMAL DREAMS [None]
  - DECREASED APPETITE [None]
  - DIARRHOEA [None]
  - DIZZINESS [None]
  - EAR INFECTION [None]
  - HEADACHE [None]
  - HYPOAESTHESIA [None]
  - NAUSEA [None]
  - PAIN [None]
  - POOR QUALITY SLEEP [None]
  - SINUSITIS [None]
  - VISION BLURRED [None]
  - VOMITING [None]
  - WEIGHT DECREASED [None]
